FAERS Safety Report 7240652-4 (Version None)
Quarter: 2011Q1

REPORT INFORMATION
  Report Type: 
  Country: None (occurrence: None)
  Receive Date: 20110124
  Receipt Date: 20100726
  Transmission Date: 20110831
  Serious: No
  Sender: FDA-Public Use
  Company Number: US-KINGPHARMUSA00001-K201000937

PATIENT
  Age: 16 Year
  Sex: Male
  Weight: 81.633 kg

DRUGS (4)
  1. EPIPEN [Suspect]
     Indication: HYPERSENSITIVITY
     Dosage: 0.3 MG, SINGLE
     Route: 030
     Dates: start: 20100701, end: 20100701
  2. BENZOYL PEROXIDE [Concomitant]
     Indication: ACNE
     Dosage: UNK
     Route: 061
  3. ANTI-ACNE PREPARATIONS FOR TOPICAL USE [Concomitant]
     Indication: ACNE
     Dosage: UNK
     Route: 061
  4. SULFA [Concomitant]
     Indication: ACNE
     Dosage: UNK
     Route: 061

REACTIONS (1)
  - DRUG INEFFECTIVE [None]
